FAERS Safety Report 5787098-3 (Version None)
Quarter: 2008Q2

REPORT INFORMATION
  Report Type: 
  Country: None (occurrence: None)
  Receive Date: 20080625
  Receipt Date: 20080623
  Transmission Date: 20081010
  Serious: Yes (Hospitalization)
  Sender: FDA-Public Use
  Company Number: RU-BRISTOL-MYERS SQUIBB COMPANY-13003009

PATIENT
  Age: 63 Year
  Sex: Male
  Weight: 83 kg

DRUGS (2)
  1. CISPLATIN [Suspect]
     Indication: SMALL CELL LUNG CANCER STAGE UNSPECIFIED
     Dosage: DOSE REDUCED TO 80MG/M2 ONCE DAILY FROM 160MG ON DAY 1.
     Route: 042
     Dates: start: 20050505, end: 20050505
  2. CAMPTO [Suspect]
     Indication: SMALL CELL LUNG CANCER STAGE UNSPECIFIED
     Dosage: DOSE REDUCED TO 65MG/M2 ONCE DAILY FROM130MG ON DAY 1 AND 8.
     Route: 042
     Dates: start: 20050512, end: 20050512

REACTIONS (6)
  - ANOREXIA [None]
  - FATIGUE [None]
  - NAUSEA [None]
  - PERFORMANCE STATUS DECREASED [None]
  - PYREXIA [None]
  - VOMITING [None]
